FAERS Safety Report 13076898 (Version 1)
Quarter: 2016Q4

REPORT INFORMATION
  Report Type: Spontaneous
  Country: FR (occurrence: FR)
  Receive Date: 20161230
  Receipt Date: 20161230
  Transmission Date: 20170207
  Serious: Yes (Hospitalization, Other)
  Sender: FDA-Public Use
  Company Number: FR-PFIZER INC-2016597245

PATIENT
  Age: 59 Year
  Sex: Female

DRUGS (14)
  1. VANCOMYCINE [Suspect]
     Active Substance: VANCOMYCIN
     Indication: INFECTION
     Dosage: 2.5 G, 1X/DAY
     Route: 042
     Dates: start: 20161020, end: 20161129
  2. SYMBICORT [Concomitant]
     Active Substance: BUDESONIDE\FORMOTEROL FUMARATE DIHYDRATE
  3. PANTOPRAZOLE [Suspect]
     Active Substance: PANTOPRAZOLE SODIUM
     Indication: PROPHYLAXIS AGAINST GASTROINTESTINAL ULCER
     Dosage: 1 DF, 1X/DAY
     Route: 048
     Dates: start: 201611, end: 20161130
  4. LOVENOX [Concomitant]
     Active Substance: ENOXAPARIN SODIUM
     Dosage: UNK
     Dates: start: 201609, end: 20161129
  5. PRAVASTATIN. [Concomitant]
     Active Substance: PRAVASTATIN
  6. TAZOCILLINE [Suspect]
     Active Substance: PIPERACILLIN SODIUM\TAZOBACTAM SODIUM
     Dosage: 4 G, 2X/DAY
     Dates: start: 20161129, end: 20161130
  7. ALPRAZOLAM. [Concomitant]
     Active Substance: ALPRAZOLAM
  8. PREGABALIN. [Concomitant]
     Active Substance: PREGABALIN
  9. BISOPROLOL [Concomitant]
     Active Substance: BISOPROLOL
  10. RAMIPRIL. [Concomitant]
     Active Substance: RAMIPRIL
     Dosage: UNK
     Dates: end: 20161129
  11. KARDEGIC [Concomitant]
     Active Substance: ASPIRIN LYSINE
  12. PARACETAMOL [Concomitant]
     Active Substance: ACETAMINOPHEN
  13. TAZOCILLINE [Suspect]
     Active Substance: PIPERACILLIN SODIUM\TAZOBACTAM SODIUM
     Indication: INFECTION
     Dosage: 4 G, 3X/DAY
     Route: 042
     Dates: start: 20161020, end: 20161128
  14. TRAMADOL. [Concomitant]
     Active Substance: TRAMADOL

REACTIONS (6)
  - Acute kidney injury [Recovering/Resolving]
  - Renal tubular necrosis [Unknown]
  - Drug level increased [Unknown]
  - Tubulointerstitial nephritis [Unknown]
  - Rash pruritic [Unknown]
  - Eosinophilia [Unknown]

NARRATIVE: CASE EVENT DATE: 20161115
